FAERS Safety Report 12072576 (Version 1)
Quarter: 2016Q1

REPORT INFORMATION
  Report Type: Spontaneous
  Country: US (occurrence: None)
  Receive Date: 20160211
  Receipt Date: 20160211
  Transmission Date: 20160526
  Serious: No
  Sender: FDA-Public Use
  Company Number: None

PATIENT
  Age: 5 Year
  Sex: Male

DRUGS (3)
  1. SYNAGIS [Suspect]
     Active Substance: PALIVIZUMAB
     Indication: RESPIRATORY SYNCYTIAL VIRUS TEST POSITIVE
     Route: 030
     Dates: start: 20160125
  2. SOD CHLORIDE [Concomitant]
  3. RANITIDINE SYP [Concomitant]

REACTIONS (2)
  - Pyrexia [None]
  - Irritability [None]

NARRATIVE: CASE EVENT DATE: 2016
